FAERS Safety Report 11443255 (Version 2)
Quarter: 2015Q3

REPORT INFORMATION
  Report Type: Spontaneous
  Country: DE (occurrence: DE)
  Receive Date: 20150901
  Receipt Date: 20150915
  Transmission Date: 20151125
  Serious: Yes (Hospitalization)
  Sender: FDA-Public Use
  Company Number: DE-SA-2015SA130242

PATIENT
  Sex: Female

DRUGS (10)
  1. LEMTRADA [Suspect]
     Active Substance: ALEMTUZUMAB
     Indication: MULTIPLE SCLEROSIS
     Route: 041
     Dates: start: 20150824, end: 20150826
  2. PARACETAMOL [Concomitant]
     Active Substance: ACETAMINOPHEN
  3. CLEXANE [Concomitant]
     Active Substance: ENOXAPARIN SODIUM
  4. VALPROATE SODIUM. [Concomitant]
     Active Substance: VALPROATE SODIUM
     Indication: EPILEPSY
     Dosage: DOSE: 200
     Route: 048
  5. RANITIDINE [Concomitant]
     Active Substance: RANITIDINE\RANITIDINE HYDROCHLORIDE
  6. LAMOTRIGINE. [Concomitant]
     Active Substance: LAMOTRIGINE
     Indication: EPILEPSY
     Dosage: DOSE: 100
     Route: 048
  7. FENISTIL [Concomitant]
     Active Substance: DIMETHINDENE
  8. CLONT [Concomitant]
  9. AMISULPRID [Concomitant]
     Active Substance: AMISULPRIDE
     Indication: TRANSIENT PSYCHOSIS
     Dosage: DOSE: 100
     Route: 048
  10. ASPIRIN. [Concomitant]
     Active Substance: ASPIRIN
     Indication: REVERSIBLE CEREBRAL VASOCONSTRICTION SYNDROME
     Dosage: DOSE: 100
     Route: 048

REACTIONS (4)
  - C-reactive protein increased [Recovered/Resolved]
  - Epilepsy [Recovered/Resolved]
  - Procalcitonin increased [Recovered/Resolved]
  - Atypical pneumonia [Recovered/Resolved]

NARRATIVE: CASE EVENT DATE: 20150824
